FAERS Safety Report 13881885 (Version 1)
Quarter: 2017Q3

REPORT INFORMATION
  Report Type: Spontaneous
  Country: FR (occurrence: FR)
  Receive Date: 20170818
  Receipt Date: 20170818
  Transmission Date: 20171127
  Serious: Yes (Other)
  Sender: FDA-Public Use
  Company Number: FR-JNJFOC-20170810522

PATIENT
  Age: 35 Year
  Sex: Female

DRUGS (3)
  1. EPITOMAX [Suspect]
     Active Substance: TOPIRAMATE
     Indication: EPILEPSY
     Dosage: INCREASED DOSE WITH LEVEL OF 25 MG PER WEEK UNTIL 150 MG PER DAY
     Route: 048
  2. EPITOMAX [Suspect]
     Active Substance: TOPIRAMATE
     Indication: EPILEPSY
     Route: 048
     Dates: start: 20160907
  3. EPITOMAX [Suspect]
     Active Substance: TOPIRAMATE
     Indication: EPILEPSY
     Route: 048
     Dates: end: 201704

REACTIONS (6)
  - Leukopenia [Unknown]
  - Irritability [Recovered/Resolved]
  - Aggression [Recovered/Resolved]
  - Joint swelling [Recovered/Resolved]
  - Tachycardia [Recovered/Resolved with Sequelae]
  - Insomnia [Recovered/Resolved]

NARRATIVE: CASE EVENT DATE: 201610
